FAERS Safety Report 18544129 (Version 2)
Quarter: 2020Q4

REPORT INFORMATION
  Report Type: Spontaneous
  Country: US (occurrence: US)
  Receive Date: 20201125
  Receipt Date: 20201204
  Transmission Date: 20210114
  Serious: No
  Sender: FDA-Public Use
  Company Number: US-HORIZON-2020HZN01578

PATIENT
  Age: 55 Year
  Sex: Male

DRUGS (9)
  1. ACTIMMUNE [Suspect]
     Active Substance: INTERFERON GAMMA-1B
     Indication: CUTANEOUS T-CELL LYMPHOMA
     Dosage: INJECT 0.94ML (188MCG) UNDER THE SKIN THREE TIMES A WEEK ; TIME INTERVAL: 0.33 WK
     Route: 050
     Dates: end: 20201001
  2. GABAPENTIN. [Concomitant]
     Active Substance: GABAPENTIN
  3. COZAAR [Concomitant]
     Active Substance: LOSARTAN POTASSIUM
  4. MUPIROCIN. [Concomitant]
     Active Substance: MUPIROCIN
  5. PERIDEX [Concomitant]
     Active Substance: CHLORHEXIDINE GLUCONATE
  6. KENALOG [Concomitant]
     Active Substance: TRIAMCINOLONE ACETONIDE
  7. BACTRIM [Concomitant]
     Active Substance: SULFAMETHOXAZOLE\TRIMETHOPRIM
  8. CLOBETASOL [Concomitant]
     Active Substance: CLOBETASOL
  9. PEMBROLIZUMAB. [Concomitant]
     Active Substance: PEMBROLIZUMAB

REACTIONS (2)
  - COVID-19 [Recovered/Resolved]
  - Off label use [Unknown]

NARRATIVE: CASE EVENT DATE: 20201113
